FAERS Safety Report 26081025 (Version 1)
Quarter: 2025Q4

REPORT INFORMATION
  Report Type: Spontaneous
  Country: US (occurrence: US)
  Receive Date: 20251124
  Receipt Date: 20251124
  Transmission Date: 20260118
  Serious: No
  Sender: ALVOGEN
  Company Number: US-ALVOGEN-2024095857

PATIENT
  Sex: Female

DRUGS (3)
  1. TERIPARATIDE [Suspect]
     Active Substance: TERIPARATIDE
     Indication: Osteoporosis
     Dosage: FIRST 2 PEN?STRENGTH: 250 UG/ML
     Dates: start: 202410
  2. TERIPARATIDE [Suspect]
     Active Substance: TERIPARATIDE
     Indication: Osteoporosis
     Dosage: STRENGTH: 620 MCG/2.48 ML(250 UG/ML)?EXP. DATE:NOV-2025?SECOND PEN, TOOK ONE DOSE
     Route: 058
     Dates: start: 20241118
  3. TERIPARATIDE [Suspect]
     Active Substance: TERIPARATIDE
     Indication: Osteoporosis
     Dosage: EXP. DATE: NOV-2025; RECEIVED NEW PEN ON 08-JAN-2025, DID NOT TAKE ANY DOSE (4TH PEN)?250 UG/ML
     Route: 058

REACTIONS (8)
  - Device malfunction [Unknown]
  - Device operational issue [Unknown]
  - Product outer packaging issue [Unknown]
  - Device physical property issue [Unknown]
  - Poor quality device used [Unknown]
  - Drug dose omission by device [Unknown]
  - Product use issue [Unknown]
  - Device defective [Unknown]

NARRATIVE: CASE EVENT DATE: 20241101
